FAERS Safety Report 7343404-X (Version None)
Quarter: 2011Q1

REPORT INFORMATION
  Report Type: 
  Country: None (occurrence: None)
  Receive Date: 20110310
  Receipt Date: 20110211
  Transmission Date: 20110831
  Serious: No
  Sender: FDA-Public Use
  Company Number: US-B.I. PHARMACEUTICALS,INC./RIDGEFIELD-2010-BP-15397BP

PATIENT
  Sex: Female

DRUGS (6)
  1. WARFARIN [Concomitant]
     Indication: ATRIAL FIBRILLATION
     Dates: end: 20101201
  2. METOPROLOL [Concomitant]
  3. AMBIEN [Concomitant]
  4. METFORMIN [Concomitant]
  5. PRADAXA [Suspect]
     Indication: ATRIAL FIBRILLATION
     Dosage: 300 MG
     Route: 048
     Dates: start: 20101213
  6. SIMVASTATIN [Concomitant]

REACTIONS (1)
  - HEADACHE [None]
